FAERS Safety Report 16288143 (Version 6)
Quarter: 2023Q4

REPORT INFORMATION
  Report Type: Report from Study
  Country: US (occurrence: US)
  Receive Date: 20190508
  Receipt Date: 20231121
  Transmission Date: 20240110
  Serious: Yes (Hospitalization, Other)
  Sender: FDA-Public Use
  Company Number: US-SHIRE-US201914749

PATIENT
  Age: 10 Year
  Sex: Male
  Weight: 66.5 kg

DRUGS (8)
  1. IDURSULFASE [Suspect]
     Active Substance: IDURSULFASE
     Indication: Mucopolysaccharidosis II
     Dosage: UNK UNK, 1/WEEK
     Route: 042
  2. IDURSULFASE [Suspect]
     Active Substance: IDURSULFASE
     Dosage: 34 MILLIGRAM, 1/WEEK
     Route: 042
     Dates: start: 202106
  3. IDURSULFASE [Suspect]
     Active Substance: IDURSULFASE
     Dosage: 27.4 MILLIGRAM, 1/WEEK
     Route: 065
     Dates: start: 20210602
  4. IDURSULFASE [Suspect]
     Active Substance: IDURSULFASE
     Dosage: 30.6 MILLIGRAM, 1/WEEK
     Route: 042
  5. IDURSULFASE [Suspect]
     Active Substance: IDURSULFASE
     Dosage: 33.3 MILLIGRAM, 1/WEEK
     Route: 042
  6. IDURSULFASE [Suspect]
     Active Substance: IDURSULFASE
     Dosage: 33 MILLIGRAM, MONTHLY
     Route: 050
     Dates: start: 20210705
  7. IDURSULFASE [Suspect]
     Active Substance: IDURSULFASE
     Dosage: 34 MILLIGRAM, 1/WEEK
     Route: 042
  8. INSULIN NOS [Concomitant]
     Active Substance: INSULIN NOS
     Indication: Device infusion issue
     Dosage: UNK
     Route: 065

REACTIONS (8)
  - Nasopharyngitis [Recovered/Resolved]
  - Device related infection [Unknown]
  - Device issue [Recovered/Resolved]
  - Weight decreased [Unknown]
  - Catheter site erythema [Unknown]
  - Catheter site irritation [Unknown]
  - Weight increased [Unknown]
  - Product dose omission issue [Unknown]

NARRATIVE: CASE EVENT DATE: 20220725
